FAERS Safety Report 26163817 (Version 1)
Quarter: 2025Q4

REPORT INFORMATION
  Report Type: Report from Study
  Country: US (occurrence: US)
  Receive Date: 20251216
  Receipt Date: 20251216
  Transmission Date: 20260117
  Serious: Yes (Death, Hospitalization)
  Sender: OTSUKA
  Company Number: US-MMM-Otsuka-FKTU6QGW

PATIENT
  Sex: Male

DRUGS (3)
  1. BREXPIPRAZOLE [Suspect]
     Active Substance: BREXPIPRAZOLE
     Indication: Major depression
     Dosage: 1 MG, DAILY
     Route: 061
     Dates: start: 20241017
  2. BREXPIPRAZOLE [Suspect]
     Active Substance: BREXPIPRAZOLE
     Dosage: 0.5 MG, DAILY
     Route: 061
     Dates: start: 202503, end: 202503
  3. BREXPIPRAZOLE [Suspect]
     Active Substance: BREXPIPRAZOLE
     Dosage: 1 MG, DAILY (WENT BACK UP TO 1 MG)
     Route: 061
     Dates: start: 20250320

REACTIONS (2)
  - Chronic obstructive pulmonary disease [Fatal]
  - Suspected COVID-19 [Unknown]

NARRATIVE: CASE EVENT DATE: 20250101
